FAERS Safety Report 7413447-6 (Version None)
Quarter: 2011Q2

REPORT INFORMATION
  Report Type: 
  Country: None (occurrence: None)
  Receive Date: 20110413
  Receipt Date: 20110406
  Transmission Date: 20111010
  Serious: Yes (Other)
  Sender: FDA-Public Use
  Company Number: PHHY2011JP28748

PATIENT
  Age: 1 Year
  Sex: Male

DRUGS (3)
  1. ZADITEN [Suspect]
     Indication: DERMATITIS ATOPIC
     Dosage: 0.6 G, DAILY
     Route: 048
     Dates: start: 20100820, end: 20101230
  2. TELGIN-G [Suspect]
     Dosage: 1 G, DAILY
     Route: 048
     Dates: start: 20101231, end: 20110405
  3. BIOTIN [Concomitant]
     Dosage: 1 G, UNK
     Route: 048
     Dates: start: 20100820

REACTIONS (1)
  - CONVULSION [None]
